FAERS Safety Report 5340952-9 (Version None)
Quarter: 2007Q2

REPORT INFORMATION
  Report Type: 
  Country: None (occurrence: None)
  Receive Date: 20070405
  Receipt Date: 20061102
  Transmission Date: 20071010
  Serious: No
  Sender: FDA-Public Use
  Company Number: US200606002031

PATIENT
  Sex: Female

DRUGS (7)
  1. CYMBALTA [Suspect]
     Indication: PAIN
     Dosage: SEE IMAGE
     Dates: end: 20060528
  2. CYMBALTA [Suspect]
     Indication: PAIN
     Dosage: SEE IMAGE
     Dates: start: 20060401
  3. PROZAC [Suspect]
     Indication: PAIN
     Dosage: SEE IMAGE
     Dates: start: 19890101, end: 20060401
  4. PROZAC [Suspect]
     Indication: PAIN
     Dosage: SEE IMAGE
     Dates: start: 20060528
  5. RITALIN [Concomitant]
  6. PAMELOR /USA/ (NORTRIPTYLINE HYDROCHLORIDE) [Concomitant]
  7. VALIUM /NET/ (DIAZEPAM) [Concomitant]

REACTIONS (2)
  - PAIN [None]
  - PARAESTHESIA [None]
